FAERS Safety Report 11372352 (Version 1)
Quarter: 2015Q3

REPORT INFORMATION
  Report Type: Spontaneous
  Country: US (occurrence: US)
  Receive Date: 20150811
  Receipt Date: 20150811
  Transmission Date: 20151125
  Serious: No
  Sender: FDA-Public Use
  Company Number: US-ELI_LILLY_AND_COMPANY-US201308000346

PATIENT
  Sex: Male

DRUGS (12)
  1. OMEPRAZOL [Concomitant]
     Active Substance: OMEPRAZOLE
  2. GLIPIRIDE [Concomitant]
     Active Substance: GLIMEPIRIDE
  3. KOMBIGLYZE XR [Concomitant]
     Active Substance: METFORMIN HYDROCHLORIDE\SAXAGLIPTIN HYDROCHLORIDE
  4. VITAMIN D [Concomitant]
     Active Substance: CHOLECALCIFEROL
  5. ACA [Concomitant]
  6. AXIRON [Suspect]
     Active Substance: TESTOSTERONE
     Indication: BLOOD TESTOSTERONE DECREASED
     Dosage: 60 MG, EACH MORNING
     Dates: start: 20130618, end: 20130807
  7. LISINOPRIL + HIDROCLOROTIAZIDA [Concomitant]
     Active Substance: HYDROCHLOROTHIAZIDE\LISINOPRIL
  8. C-PAP [Concomitant]
  9. CRESTOR [Concomitant]
     Active Substance: ROSUVASTATIN CALCIUM
  10. AXIRON [Suspect]
     Active Substance: TESTOSTERONE
     Dosage: 60 MG, EACH MORNING
     Dates: start: 20130618, end: 20130807
  11. LOVAZA [Concomitant]
     Active Substance: OMEGA-3-ACID ETHYL ESTERS
  12. GENFIBROZILA [Concomitant]

REACTIONS (3)
  - Sleep apnoea syndrome [Unknown]
  - Drug ineffective [Unknown]
  - Panic attack [Not Recovered/Not Resolved]
